FAERS Safety Report 5449539-0 (Version None)
Quarter: 2007Q3

REPORT INFORMATION
  Report Type: 
  Country: None (occurrence: None)
  Receive Date: 20070907
  Receipt Date: 20070809
  Transmission Date: 20080115
  Serious: Yes (Death, Life-Threatening, Hospitalization, Other)
  Sender: FDA-Public Use
  Company Number: 2007US001917

PATIENT
  Age: 46 Year
  Sex: Male

DRUGS (5)
  1. PROGRAF [Suspect]
     Indication: PROPHYLAXIS AGAINST TRANSPLANT REJECTION
  2. METHOTREXATE [Concomitant]
  3. FLUCONAZOLE [Concomitant]
  4. FLUDARABINE PHOSPHATE [Concomitant]
  5. MELPHALAN                        (MELPHALAN) [Concomitant]

REACTIONS (15)
  - ALANINE AMINOTRANSFERASE INCREASED [None]
  - DIARRHOEA [None]
  - ENTEROCOCCAL BACTERAEMIA [None]
  - HEPATIC INFECTION FUNGAL [None]
  - IMPAIRED GASTRIC EMPTYING [None]
  - KLEBSIELLA BACTERAEMIA [None]
  - LUNG INFILTRATION [None]
  - MUCORMYCOSIS [None]
  - MUCOSAL INFLAMMATION [None]
  - MULTI-ORGAN FAILURE [None]
  - NEUTROPENIA [None]
  - PNEUMONITIS [None]
  - RENAL IMPAIRMENT [None]
  - SHOCK [None]
  - SPLENOMEGALY [None]
